FAERS Safety Report 7298421-5 (Version None)
Quarter: 2011Q1

REPORT INFORMATION
  Report Type: 
  Country: None (occurrence: None)
  Receive Date: 20110217
  Receipt Date: 20110214
  Transmission Date: 20110831
  Serious: Yes (Hospitalization)
  Sender: FDA-Public Use
  Company Number: FR-SANOFI-AVENTIS-2011SA009448

PATIENT
  Age: 58 Year
  Sex: Female

DRUGS (14)
  1. MIOREL [Concomitant]
  2. DITROPAN [Concomitant]
  3. OMIX [Concomitant]
  4. ACETAMINOPHEN [Concomitant]
  5. NOCTRAN [Concomitant]
  6. ULTRA-LEVURE [Concomitant]
  7. XANAX [Concomitant]
  8. ERCEFURYL [Concomitant]
  9. ARAVA [Suspect]
     Route: 048
     Dates: start: 20101117
  10. MANTADIX [Concomitant]
  11. SMECTA ^IPSEN^ [Concomitant]
  12. BACLOFEN [Concomitant]
  13. PAROXETINE HCL [Concomitant]
  14. DANTRIUM [Suspect]
     Route: 048
     Dates: start: 20091001, end: 20110101

REACTIONS (2)
  - ACUTE HEPATIC FAILURE [None]
  - HEPATITIS ACUTE [None]
